FAERS Safety Report 22734603 (Version 6)
Quarter: 2024Q2

REPORT INFORMATION
  Report Type: Report from Study
  Country: US (occurrence: US)
  Receive Date: 20230721
  Receipt Date: 20240614
  Transmission Date: 20240716
  Serious: Yes (Hospitalization, Other)
  Sender: FDA-Public Use
  Company Number: US-ACADIA PHARMACEUTICALS INC.-ACA-2023-TRF-002973

PATIENT
  Age: 9 Year
  Sex: Female

DRUGS (3)
  1. DAYBUE [Suspect]
     Active Substance: TROFINETIDE
     Indication: Rett syndrome
     Dosage: 40 MILLILITER, BID VIA G TUBE
  2. DAYBUE [Suspect]
     Active Substance: TROFINETIDE
     Dosage: 30-35ML/BID
  3. DAYBUE [Suspect]
     Active Substance: TROFINETIDE
     Dosage: 40 MILLILITER, BID VIA G TUBE

REACTIONS (11)
  - Intestinal obstruction [Unknown]
  - Intestinal obstruction [Recovered/Resolved]
  - Thrombosis [Unknown]
  - Vomiting [Recovered/Resolved]
  - Gastrointestinal disorder [Unknown]
  - Spinal operation [Not Recovered/Not Resolved]
  - Flatulence [Not Recovered/Not Resolved]
  - Bone pain [Not Recovered/Not Resolved]
  - Flatulence [Not Recovered/Not Resolved]
  - Diarrhoea [Not Recovered/Not Resolved]
  - Diarrhoea [Not Recovered/Not Resolved]

NARRATIVE: CASE EVENT DATE: 20230701
